FAERS Safety Report 6620915-3 (Version None)
Quarter: 2010Q1

REPORT INFORMATION
  Report Type: 
  Country: None (occurrence: None)
  Receive Date: 20100308
  Receipt Date: 20100308
  Transmission Date: 20100710
  Serious: No
  Sender: FDA-Public Use
  Company Number: None

PATIENT
  Sex: Male
  Weight: 74.8435 kg

DRUGS (1)
  1. IC AMPHETAMINE SALT 30MG TABCOR 30MG COREPHARMA LLC [Suspect]
     Indication: ATTENTION DEFICIT/HYPERACTIVITY DISORDER
     Dosage: 20MG 1-2 TIMES A DAY PO
     Route: 048
     Dates: start: 20100305, end: 20100306

REACTIONS (5)
  - ANGER [None]
  - DRUG INEFFECTIVE [None]
  - HEART RATE INCREASED [None]
  - IRRITABILITY [None]
  - PRODUCT SUBSTITUTION ISSUE [None]
